FAERS Safety Report 20254366 (Version 1)
Quarter: 2021Q4

REPORT INFORMATION
  Report Type: Spontaneous
  Country: US (occurrence: US)
  Receive Date: 20211230
  Receipt Date: 20211230
  Transmission Date: 20220303
  Serious: No
  Sender: FDA-Public Use
  Company Number: US-CELGENE-USA-20211207812

PATIENT
  Sex: Male
  Weight: 127.12 kg

DRUGS (5)
  1. REVLIMID [Suspect]
     Active Substance: LENALIDOMIDE
     Indication: Plasma cell myeloma
     Dosage: 25 MILLIGRAM
     Route: 048
     Dates: start: 201710
  2. REVLIMID [Suspect]
     Active Substance: LENALIDOMIDE
     Indication: Amyloidosis
     Dosage: 10 MILLIGRAM
     Route: 048
     Dates: start: 201808
  3. REVLIMID [Suspect]
     Active Substance: LENALIDOMIDE
     Dosage: 5 MILLIGRAM
     Route: 048
     Dates: start: 201905
  4. AMIODARONE [Concomitant]
     Active Substance: AMIODARONE
     Indication: Product used for unknown indication
     Route: 065
     Dates: end: 20211221
  5. CARVEDILOL [Concomitant]
     Active Substance: CARVEDILOL
     Indication: Product used for unknown indication
     Route: 065

REACTIONS (2)
  - Swelling [Unknown]
  - Incontinence [Unknown]
